FAERS Safety Report 16338534 (Version 1)
Quarter: 2019Q2

REPORT INFORMATION
  Report Type: Spontaneous
  Country: BR (occurrence: BR)
  Receive Date: 20190521
  Receipt Date: 20190521
  Transmission Date: 20190711
  Serious: Yes (Other)
  Sender: FDA-Public Use
  Company Number: BR-SA-2019SA126763

PATIENT
  Sex: Female

DRUGS (4)
  1. CLEXANE [Suspect]
     Active Substance: ENOXAPARIN SODIUM
     Dosage: 40 MG, QD
     Route: 065
     Dates: start: 201812, end: 201812
  2. PROGESTAN [Concomitant]
     Active Substance: PROGESTERONE
     Indication: PRODUCT USED FOR UNKNOWN INDICATION
     Dosage: UNK
  3. CLEXANE [Suspect]
     Active Substance: ENOXAPARIN SODIUM
     Indication: HYPERCOAGULATION
     Dosage: UNK UNK, UNK
     Route: 065
     Dates: start: 201810, end: 201810
  4. CLEXANE [Suspect]
     Active Substance: ENOXAPARIN SODIUM
     Dosage: UNK UNK, UNK
     Route: 065
     Dates: start: 201811, end: 201811

REACTIONS (4)
  - Haemorrhage [Unknown]
  - Exposure during pregnancy [Unknown]
  - Abortion [Unknown]
  - Off label use [Unknown]

NARRATIVE: CASE EVENT DATE: 201812
